FAERS Safety Report 16017442 (Version 2)
Quarter: 2019Q1

REPORT INFORMATION
  Report Type: Spontaneous
  Country: FI (occurrence: FI)
  Receive Date: 20190228
  Receipt Date: 20190308
  Transmission Date: 20190418
  Serious: Yes (Other)
  Sender: FDA-Public Use
  Company Number: FI-ELI_LILLY_AND_COMPANY-FI201902012424

PATIENT
  Sex: Male

DRUGS (1)
  1. HUMALOG [Suspect]
     Active Substance: INSULIN LISPRO
     Indication: DIABETES MELLITUS
     Dosage: 30 U, DAILY
     Route: 065

REACTIONS (5)
  - Joint injury [Unknown]
  - Accident [Unknown]
  - Gait disturbance [Unknown]
  - Femur fracture [Unknown]
  - Memory impairment [Unknown]
